FAERS Safety Report 23083218 (Version 1)
Quarter: 2023Q4

REPORT INFORMATION
  Report Type: Spontaneous
  Country: CN (occurrence: CN)
  Receive Date: 20231019
  Receipt Date: 20231019
  Transmission Date: 20240109
  Serious: Yes (Hospitalization, Other)
  Sender: FDA-Public Use
  Company Number: None

PATIENT
  Age: 50 Year
  Sex: Male

DRUGS (13)
  1. CYCLOPHOSPHAMIDE [Suspect]
     Active Substance: CYCLOPHOSPHAMIDE
     Indication: Diffuse large B-cell lymphoma
     Dosage: 1.2 G, ONE TIME IN ONE DAY, DILUTED WITH 40 ML OF SODIUM CHLORIDE
     Route: 042
     Dates: start: 20230907, end: 20230907
  2. CYCLOPHOSPHAMIDE [Suspect]
     Active Substance: CYCLOPHOSPHAMIDE
     Indication: Diffuse large B-cell lymphoma
  3. SODIUM CHLORIDE [Suspect]
     Active Substance: SODIUM CHLORIDE
     Indication: Medication dilution
     Dosage: 40 ML, ONE TIME IN ONE DAY, USED TO DILUTE 1.2 G OF CYCLOPHOSPHAMIDE
     Route: 042
     Dates: start: 20230907, end: 20230907
  4. SODIUM CHLORIDE [Suspect]
     Active Substance: SODIUM CHLORIDE
     Dosage: 100 ML, ONE TIME IN ONE DAY, USED TO DILUTE 100 MG OF RITUXIMAB
     Route: 042
     Dates: start: 20230907, end: 20230907
  5. SODIUM CHLORIDE [Suspect]
     Active Substance: SODIUM CHLORIDE
     Dosage: 500 ML, ONE TIME IN ONE DAY, USED TO DILUTE 500 MG OF RITUXIMAB
     Route: 042
     Dates: start: 20230907, end: 20230907
  6. SODIUM CHLORIDE [Suspect]
     Active Substance: SODIUM CHLORIDE
     Dosage: 40 ML, ONE TIME IN ONE DAY, USED TO DILUTE 65 MG OF DOXORUBICIN HYDROCHLORIDE
     Route: 042
     Dates: start: 20230907, end: 20230907
  7. SODIUM CHLORIDE [Suspect]
     Active Substance: SODIUM CHLORIDE
     Dosage: 40 ML, ONE TIME IN ONE DAY, USED TO DILUTE 2 MG OF VINCRISTINE SULFATE
     Route: 042
     Dates: start: 20230907, end: 20230907
  8. RITUXIMAB [Suspect]
     Active Substance: RITUXIMAB
     Indication: Diffuse large B-cell lymphoma
     Dosage: 100MG, ONE TIME IN ONE DAY, DILUTED WITH 100ML OF SODIUM CHLORIDE
     Route: 042
     Dates: start: 20230907, end: 20230907
  9. RITUXIMAB [Suspect]
     Active Substance: RITUXIMAB
     Indication: Diffuse large B-cell lymphoma
     Dosage: 500MG, ONE TIME IN ONE DAY, DILUTED WITH 500ML OF SODIUM CHLORIDE
     Route: 042
     Dates: start: 20230907, end: 20230907
  10. DOXORUBICIN HYDROCHLORIDE [Suspect]
     Active Substance: DOXORUBICIN HYDROCHLORIDE
     Indication: Diffuse large B-cell lymphoma
     Dosage: 65 MG, ONE TIME IN ONE DAY, DILUTED WITH 40ML OF SODIUM CHLORIDE
     Route: 042
     Dates: start: 20230907, end: 20230907
  11. DOXORUBICIN HYDROCHLORIDE [Suspect]
     Active Substance: DOXORUBICIN HYDROCHLORIDE
     Indication: Diffuse large B-cell lymphoma
  12. VINCRISTINE SULFATE [Suspect]
     Active Substance: VINCRISTINE SULFATE
     Indication: Diffuse large B-cell lymphoma
     Dosage: 2MG, ONE TIME IN ONE DAY, DILUTED WITH 40ML OF SODIUM CHLORIDE
     Route: 042
     Dates: start: 20230907, end: 20230907
  13. VINCRISTINE SULFATE [Suspect]
     Active Substance: VINCRISTINE SULFATE
     Indication: Diffuse large B-cell lymphoma

REACTIONS (1)
  - Myelosuppression [Unknown]

NARRATIVE: CASE EVENT DATE: 20230912
